FAERS Safety Report 21614749 (Version 1)
Quarter: 2022Q4

REPORT INFORMATION
  Report Type: Other
  Country: CA (occurrence: CA)
  Receive Date: 20221118
  Receipt Date: 20221118
  Transmission Date: 20230112
  Serious: Yes (Life-Threatening, Other)
  Sender: FDA-Public Use
  Company Number: CA-APOTEX-2022AP015520

PATIENT
  Age: 78 Year
  Sex: Female

DRUGS (1)
  1. LORATADINE [Suspect]
     Active Substance: LORATADINE
     Indication: Angioedema
     Dosage: UNK
     Route: 048

REACTIONS (2)
  - Altered state of consciousness [Unknown]
  - Hypotension [Unknown]
